FAERS Safety Report 23986394 (Version 2)
Quarter: 2024Q3

REPORT INFORMATION
  Report Type: Spontaneous
  Country: PT (occurrence: PT)
  Receive Date: 20240618
  Receipt Date: 20240813
  Transmission Date: 20241016
  Serious: Yes (Hospitalization, Other)
  Sender: OTSUKA
  Company Number: PT-OTSUKA-2024_010405

PATIENT
  Age: 55 Year
  Sex: Male
  Weight: 89 kg

DRUGS (2)
  1. ABILIFY MAINTENA [Suspect]
     Active Substance: ARIPIPRAZOLE
     Indication: Psychotic disorder
     Dosage: 400 MG, QM
     Route: 030
     Dates: start: 20230830, end: 20240220
  2. QUETIAPINE [Concomitant]
     Active Substance: QUETIAPINE
     Indication: Product used for unknown indication
     Dosage: 100 MG, QD (+ 1/2 IN SOS)
     Route: 065

REACTIONS (6)
  - Injection site abscess [Recovered/Resolved]
  - Injection site swelling [Recovering/Resolving]
  - Injection site induration [Not Recovered/Not Resolved]
  - Myalgia [Recovered/Resolved]
  - Product use in unapproved indication [Unknown]
  - Inappropriate schedule of product administration [Unknown]

NARRATIVE: CASE EVENT DATE: 20230830
